FAERS Safety Report 5252786-4 (Version None)
Quarter: 2007Q1

REPORT INFORMATION
  Report Type: 
  Country: None (occurrence: None)
  Receive Date: 20070301
  Receipt Date: 20061204
  Transmission Date: 20070707
  Serious: No
  Sender: FDA-Public Use
  Company Number: US-GLAXOSMITHKLINE-A0630236A

PATIENT

DRUGS (4)
  1. LAMICTAL [Suspect]
     Indication: BIPOLAR DISORDER
     Dosage: 25MG PER DAY
     Route: 048
     Dates: start: 20061023
  2. CELEXA [Concomitant]
  3. NEURONTIN [Concomitant]
  4. SEROQUEL [Concomitant]

REACTIONS (1)
  - RASH [None]
